FAERS Safety Report 5915986-3 (Version None)
Quarter: 2008Q4

REPORT INFORMATION
  Report Type: 
  Country: None (occurrence: None)
  Receive Date: 20081013
  Receipt Date: 20081001
  Transmission Date: 20090506
  Serious: Yes (Other)
  Sender: FDA-Public Use
  Company Number: CA-JNJFOC-20080905502

PATIENT
  Sex: Male

DRUGS (7)
  1. EXTRA STRENGTH TYLENOL COLD DAYTIME [Suspect]
     Indication: INFLUENZA
     Route: 048
  2. ZOCOR [Concomitant]
     Indication: BLOOD CHOLESTEROL INCREASED
  3. NOVO RAMIPRIL [Concomitant]
  4. NOVO ALPRAZOL [Concomitant]
  5. APOLATIME [Concomitant]
  6. LABETALOL HCL [Concomitant]
     Indication: BLOOD PRESSURE
  7. NOVO-CLONIDINE [Concomitant]
     Indication: BLOOD PRESSURE

REACTIONS (3)
  - DYSURIA [None]
  - PROSTATIC OBSTRUCTION [None]
  - URINARY TRACT INFECTION [None]
